FAERS Safety Report 4353961-3 (Version None)
Quarter: 2004Q2

REPORT INFORMATION
  Report Type: 
  Country: None (occurrence: None)
  Receive Date: 20040506
  Receipt Date: 20040219
  Transmission Date: 20050107
  Serious: No
  Sender: FDA-Public Use
  Company Number: US-GLAXOSMITHKLINE-A0498846A

PATIENT
  Age: 56 Year
  Sex: Female

DRUGS (4)
  1. AVANDAMET [Suspect]
     Route: 048
     Dates: start: 20040209, end: 20040216
  2. ENALAPRIL MALEATE [Concomitant]
  3. BEXTRA [Concomitant]
  4. LANTUS [Concomitant]

REACTIONS (4)
  - DRUG INEFFECTIVE [None]
  - EYE REDNESS [None]
  - EYE SWELLING [None]
  - HYPERSENSITIVITY [None]
